FAERS Safety Report 7396614-X (Version None)
Quarter: 2011Q2

REPORT INFORMATION
  Report Type: 
  Country: None (occurrence: None)
  Receive Date: 20110406
  Receipt Date: 20110324
  Transmission Date: 20111010
  Serious: Yes (Other)
  Sender: FDA-Public Use
  Company Number: PHHY2011US24499

PATIENT
  Sex: Female

DRUGS (5)
  1. MULTI-VITAMINS [Concomitant]
  2. ATENOLOL [Concomitant]
  3. LIPITOR [Concomitant]
  4. ASPIRIN [Concomitant]
  5. DIOVAN [Suspect]
     Dosage: 160 MG, QD

REACTIONS (7)
  - NAUSEA [None]
  - CARDIAC DISORDER [None]
  - DIZZINESS [None]
  - DIARRHOEA [None]
  - BLISTER [None]
  - CONSTIPATION [None]
  - MUSCLE SPASMS [None]
